FAERS Safety Report 19987894 (Version 1)
Quarter: 2021Q4

REPORT INFORMATION
  Report Type: Spontaneous
  Country: US (occurrence: US)
  Receive Date: 20211023
  Receipt Date: 20211023
  Transmission Date: 20220303
  Serious: Yes (Hospitalization)
  Sender: FDA-Public Use
  Company Number: US-ACCORD-238038

PATIENT
  Age: 75 Year
  Weight: 86.18 kg

DRUGS (1)
  1. SPIRONOLACTONE [Suspect]
     Active Substance: SPIRONOLACTONE
     Indication: Chronic obstructive pulmonary disease
     Dosage: ONCE A DAY

REACTIONS (4)
  - Gastric haemorrhage [Not Recovered/Not Resolved]
  - Faeces discoloured [Unknown]
  - Haematocrit decreased [Unknown]
  - Anaemia [Unknown]

NARRATIVE: CASE EVENT DATE: 20210801
